FAERS Safety Report 26189567 (Version 1)
Quarter: 2025Q4

REPORT INFORMATION
  Report Type: Spontaneous
  Country: CN (occurrence: CN)
  Receive Date: 20251223
  Receipt Date: 20251223
  Transmission Date: 20260118
  Serious: Yes (Other)
  Sender: BEIGENE
  Company Number: CN-BEONEMEDICINES-BGN-2025-022736

PATIENT
  Age: 37 Year
  Sex: Male
  Weight: 58 kg

DRUGS (6)
  1. TISLELIZUMAB [Suspect]
     Active Substance: TISLELIZUMAB
     Indication: Hypopharyngeal cancer
     Dosage: 200 MILLIGRAM, CYCLE 4
  2. TISLELIZUMAB [Suspect]
     Active Substance: TISLELIZUMAB
     Dosage: 200 MILLIGRAM, CYCLE 4
     Route: 041
  3. TISLELIZUMAB [Suspect]
     Active Substance: TISLELIZUMAB
     Dosage: 200 MILLIGRAM, CYCLE 4
     Route: 041
  4. TISLELIZUMAB [Suspect]
     Active Substance: TISLELIZUMAB
     Dosage: 200 MILLIGRAM, CYCLE 4
  5. CETUXIMAB [Concomitant]
     Active Substance: CETUXIMAB
     Indication: Hypopharyngeal cancer
     Dosage: 660 MILLIGRAM
     Route: 041
  6. CETUXIMAB [Concomitant]
     Active Substance: CETUXIMAB
     Dosage: 660 MILLIGRAM

REACTIONS (3)
  - Abdominal discomfort [Recovering/Resolving]
  - Pyrexia [Recovering/Resolving]
  - Chills [Recovering/Resolving]

NARRATIVE: CASE EVENT DATE: 20251011
